FAERS Safety Report 7379170-1 (Version None)
Quarter: 2011Q1

REPORT INFORMATION
  Report Type: 
  Country: None (occurrence: None)
  Receive Date: 20110328
  Receipt Date: 20110317
  Transmission Date: 20110831
  Serious: Yes (Other)
  Sender: FDA-Public Use
  Company Number: FR-GENENTECH-315481

PATIENT
  Sex: Male

DRUGS (1)
  1. SOMATROPIN [Suspect]
     Indication: GROWTH HORMONE DEFICIENCY
     Dosage: 0.06 MG/KG, QD
     Route: 058
     Dates: start: 20100201, end: 20110221

REACTIONS (1)
  - CEREBRAL CYST [None]
